FAERS Safety Report 20779172 (Version 1)
Quarter: 2022Q2

REPORT INFORMATION
  Report Type: Spontaneous
  Country: US (occurrence: None)
  Receive Date: 20220503
  Receipt Date: 20220503
  Transmission Date: 20220720
  Serious: No
  Sender: FDA-Public Use
  Company Number: None

PATIENT
  Sex: Male

DRUGS (1)
  1. VITRAKVI [Suspect]
     Active Substance: LAROTRECTINIB
     Indication: Rectal cancer
     Dosage: FREQUENCY : DAILY;?
     Route: 048
     Dates: start: 201912, end: 20220428

REACTIONS (1)
  - Loss of therapeutic response [None]
